FAERS Safety Report 12242171 (Version 3)
Quarter: 2016Q3

REPORT INFORMATION
  Report Type: Spontaneous
  Country: US (occurrence: US)
  Receive Date: 20160406
  Receipt Date: 20160707
  Transmission Date: 20161109
  Serious: Yes (Hospitalization, Other)
  Sender: FDA-Public Use
  Company Number: US-PFIZER INC-2016193890

PATIENT
  Age: 66 Year
  Sex: Male

DRUGS (2)
  1. XALATAN [Suspect]
     Active Substance: LATANOPROST
     Indication: BORDERLINE GLAUCOMA
     Dosage: 2 GTT IN EACH EYE, ONCE A DAY
     Route: 047
     Dates: start: 2010, end: 201601
  2. XALATAN [Suspect]
     Active Substance: LATANOPROST
     Dosage: 2 GTT, 1X/DAY
     Route: 047
     Dates: start: 20040414, end: 201401

REACTIONS (6)
  - Glioblastoma multiforme [Not Recovered/Not Resolved]
  - Product use issue [Recovered/Resolved]
  - Vision blurred [Not Recovered/Not Resolved]
  - Eye irritation [Not Recovered/Not Resolved]
  - Eye colour change [Not Recovered/Not Resolved]
  - Disease recurrence [Unknown]

NARRATIVE: CASE EVENT DATE: 2004
